FAERS Safety Report 20561675 (Version 1)
Quarter: 2022Q1

REPORT INFORMATION
  Report Type: Spontaneous
  Country: US (occurrence: None)
  Receive Date: 20220305
  Receipt Date: 20220305
  Transmission Date: 20220424
  Serious: Yes (Disabling, Other)
  Sender: FDA-Public Use
  Company Number: None

PATIENT
  Age: 47 Year
  Sex: Female
  Weight: 63 kg

DRUGS (11)
  1. ACETAMINOPHEN\HYDROCODONE [Suspect]
     Active Substance: ACETAMINOPHEN\HYDROCODONE
     Indication: Pain
     Dosage: OTHER QUANTITY : 1 TABLET(S);?FREQUENCY : EVERY 6 HOURS;?
     Route: 048
     Dates: start: 20220120, end: 20220221
  2. ACETAMINOPHEN\HYDROCODONE [Suspect]
     Active Substance: ACETAMINOPHEN\HYDROCODONE
     Indication: Pain
     Dosage: OTHER QUANTITY : 1 TABLET(S);?FREQUENCY : EVERY 6 HOURS;?
     Route: 048
     Dates: start: 20220221, end: 20220305
  3. GABAPENTIN [Concomitant]
     Active Substance: GABAPENTIN
  4. LEVOXYL [Concomitant]
     Active Substance: LEVOTHYROXINE SODIUM
  5. ALPRAZOLAM [Concomitant]
     Active Substance: ALPRAZOLAM
  6. CITALOPRAM [Concomitant]
     Active Substance: CITALOPRAM HYDROBROMIDE
  7. Hydrobromide [Concomitant]
  8. Cyanocobalamin for subcutaneous injection [Concomitant]
  9. Levalbuterol HFA [Concomitant]
  10. HYDROCODONE [Concomitant]
     Active Substance: HYDROCODONE
  11. ACETAMINOPHEN [Concomitant]
     Active Substance: ACETAMINOPHEN

REACTIONS (6)
  - Product substitution issue [None]
  - Dizziness [None]
  - Gastrointestinal disorder [None]
  - Diarrhoea [None]
  - Reaction to excipient [None]
  - Loss of personal independence in daily activities [None]

NARRATIVE: CASE EVENT DATE: 20211018
